FAERS Safety Report 4421339-X (Version None)
Quarter: 2004Q3

REPORT INFORMATION
  Report Type: 
  Country: None (occurrence: None)
  Receive Date: 20040804
  Receipt Date: 20040722
  Transmission Date: 20050211
  Serious: Yes (Life-Threatening)
  Sender: FDA-Public Use
  Company Number: 2004050003

PATIENT
  Age: 21 Year
  Sex: Male

DRUGS (1)
  1. UNASYN [Suspect]
     Indication: ANTIBACTERIAL PROPHYLAXIS
     Dosage: 1.5 GRAM (1.5 GRAM, 1 IN 1 D), INTRAVENOUS
     Route: 042
     Dates: start: 20040721, end: 20040721

REACTIONS (4)
  - CONJUNCTIVITIS [None]
  - GENERALISED ERYTHEMA [None]
  - LARYNGEAL OEDEMA [None]
  - LARYNGOSPASM [None]
